FAERS Safety Report 10492886 (Version 1)
Quarter: 2014Q4

REPORT INFORMATION
  Report Type: Spontaneous
  Country: US (occurrence: US)
  Receive Date: 20141002
  Receipt Date: 20141002
  Transmission Date: 20150528
  Serious: No
  Sender: FDA-Public Use
  Company Number: US-GLAXOSMITHKLINE-A1076578A

PATIENT
  Age: 78 Year
  Sex: Female

DRUGS (5)
  1. AMANTADINE [Concomitant]
     Active Substance: AMANTADINE
  2. ADVAIR HFA [Suspect]
     Active Substance: FLUTICASONE PROPIONATE\SALMETEROL XINAFOATE
     Indication: MULTIPLE SCLEROSIS
     Dosage: 1PUFF TWICE PER DAY
     Route: 055
     Dates: start: 2010
  3. AVONEX [Concomitant]
     Active Substance: INTERFERON BETA-1A
  4. COMPAZINE [Concomitant]
     Active Substance: PROCHLORPERAZINE MALEATE
  5. BACLOFEN. [Concomitant]
     Active Substance: BACLOFEN

REACTIONS (3)
  - Drug ineffective [Unknown]
  - Dyspnoea [Not Recovered/Not Resolved]
  - Off label use [Unknown]

NARRATIVE: CASE EVENT DATE: 201405
